FAERS Safety Report 7132699-3 (Version None)
Quarter: 2010Q4

REPORT INFORMATION
  Report Type: 
  Country: None (occurrence: None)
  Receive Date: 20101130
  Receipt Date: 20101130
  Transmission Date: 20110411
  Serious: No
  Sender: FDA-Public Use
  Company Number: None

PATIENT
  Age: 60 Year
  Sex: Male
  Weight: 108 kg

DRUGS (1)
  1. HEPARIN SODIUM 10,000 UNITS IN DEXTROSE 5% [Suspect]
     Indication: CHEST PAIN
     Dosage: 2500 UNITS ONCE IV
     Route: 042
     Dates: start: 20101123, end: 20101123

REACTIONS (2)
  - ACTIVATED PARTIAL THROMBOPLASTIN TIME SHORTENED [None]
  - PRODUCT QUALITY ISSUE [None]
